FAERS Safety Report 15796115 (Version 5)
Quarter: 2019Q1

REPORT INFORMATION
  Report Type: Report from Study
  Country: None (occurrence: GR)
  Receive Date: 20190108
  Receipt Date: 20190130
  Transmission Date: 20190417
  Serious: Yes (Hospitalization)
  Sender: FDA-Public Use
  Company Number: GR-ABBVIE-19S-066-2614437-00

PATIENT
  Age: 60 Year
  Sex: Male
  Weight: 90 kg

DRUGS (13)
  1. DUODOPA [Suspect]
     Active Substance: CARBIDOPA\LEVODOPA
     Route: 050
     Dates: start: 201901
  2. DUODOPA [Suspect]
     Active Substance: CARBIDOPA\LEVODOPA
     Dosage: MD:15.5ML;CR:5.0ML/H; ED:2.0ML
     Route: 050
  3. DUODOPA [Suspect]
     Active Substance: CARBIDOPA\LEVODOPA
     Dosage: MD 15.5ML; CR5.0ML/H;ED:2.0ML
     Route: 050
     Dates: start: 201901
  4. LOGIMAX [Concomitant]
     Active Substance: FELODIPINE\METOPROLOL SUCCINATE
     Indication: HYPERTENSION
     Dosage: (5+47.5) MG
     Route: 048
  5. DUODOPA [Suspect]
     Active Substance: CARBIDOPA\LEVODOPA
     Dosage: MD:15.5ML; CD:5.2ML/H; ED:1.7ML
     Route: 050
     Dates: start: 20190103, end: 20190104
  6. DUODOPA [Suspect]
     Active Substance: CARBIDOPA\LEVODOPA
     Dosage: MD:15.5ML; CR:5.0ML/H UNTIL AFTERNOON; CR 5.2ML/H FROM AFTERNOON ONWARDS; ED:2.0ML.
     Route: 050
  7. DUODOPA [Suspect]
     Active Substance: CARBIDOPA\LEVODOPA
     Dosage: MD:15.5ML; CD:5.4ML/H; ED:2.0ML
     Route: 050
     Dates: start: 20190104, end: 201901
  8. MADOPAR [Concomitant]
     Active Substance: BENSERAZIDE HYDROCHLORIDE\LEVODOPA
     Indication: PARKINSON^S DISEASE
     Dosage: ONCE DAILY AT 01:00 AM
     Route: 048
  9. DUODOPA [Suspect]
     Active Substance: CARBIDOPA\LEVODOPA
     Indication: PARKINSON^S DISEASE
     Route: 050
     Dates: start: 20181214, end: 20181225
  10. DUODOPA [Suspect]
     Active Substance: CARBIDOPA\LEVODOPA
     Dosage: MD:15.5ML; CD:5.0ML/H; ED:1.7ML
     Route: 050
     Dates: start: 20190103, end: 20190103
  11. DUODOPA [Suspect]
     Active Substance: CARBIDOPA\LEVODOPA
     Dosage: MD: 15.5ML; CR:5.2ML/H; ED:1.7ML
     Route: 050
     Dates: start: 20190103, end: 20190104
  12. DUODOPA [Suspect]
     Active Substance: CARBIDOPA\LEVODOPA
     Dosage: MD:15.5ML; CR:5.0ML/H; ED:1.7ML
     Route: 050
     Dates: start: 20190103, end: 20190103
  13. DUODOPA [Suspect]
     Active Substance: CARBIDOPA\LEVODOPA
     Dosage: MD:15.5ML; CR:5.4ML/H; ED:2.0ML
     Route: 050
     Dates: start: 20190104

REACTIONS (5)
  - Chest pain [Recovered/Resolved]
  - Hypoaesthesia [Not Recovered/Not Resolved]
  - Tremor [Not Recovered/Not Resolved]
  - Respiratory tract infection [Recovered/Resolved]
  - Poor quality sleep [Not Recovered/Not Resolved]

NARRATIVE: CASE EVENT DATE: 20190103
